FAERS Safety Report 5833192-8 (Version None)
Quarter: 2008Q3

REPORT INFORMATION
  Report Type: 
  Country: None (occurrence: None)
  Receive Date: 20080805
  Receipt Date: 20080729
  Transmission Date: 20090109
  Serious: Yes (Death)
  Sender: FDA-Public Use
  Company Number: US-ELI_LILLY_AND_COMPANY-US200801004685

PATIENT
  Sex: Male

DRUGS (2)
  1. ZYPREXA [Suspect]
     Dosage: UNK, UNK
     Dates: start: 19980921, end: 19981113
  2. ZYPREXA [Suspect]
     Dates: start: 19990925, end: 20041001

REACTIONS (2)
  - DEATH [None]
  - DIABETES MELLITUS [None]
